FAERS Safety Report 6122162-0 (Version None)
Quarter: 2009Q1

REPORT INFORMATION
  Report Type: 
  Country: None (occurrence: None)
  Receive Date: 20090318
  Receipt Date: 20090310
  Transmission Date: 20090719
  Serious: Yes (Other)
  Sender: FDA-Public Use
  Company Number: PHHY2009LU09228

PATIENT
  Sex: Male

DRUGS (2)
  1. RASILEZ [Suspect]
     Indication: CARDIAC FAILURE
  2. SINTROM [Suspect]

REACTIONS (3)
  - BLOOD BILIRUBIN INCREASED [None]
  - HEPATOTOXICITY [None]
  - YELLOW SKIN [None]
